FAERS Safety Report 9102941 (Version 2)
Quarter: 2013Q1

REPORT INFORMATION
  Report Type: Report from Study
  Country: NL (occurrence: NL)
  Receive Date: 20130218
  Receipt Date: 20130227
  Transmission Date: 20140127
  Serious: Yes (Death, Hospitalization)
  Sender: FDA-Public Use
  Company Number: NL-ROCHE-1191281

PATIENT
  Age: 50 Year
  Sex: Male

DRUGS (6)
  1. CAPECITABINE [Suspect]
     Indication: GASTRIC CANCER
     Dosage: BID 2 WEEKS, 3 WEEKS BID, 5 WEEKS
     Route: 048
     Dates: start: 20130107, end: 20130205
  2. EPIRUBICIN [Suspect]
     Indication: GASTRIC CANCER
     Route: 042
     Dates: start: 20130107, end: 20130128
  3. CISPLATIN [Suspect]
     Indication: GASTRIC CANCER
     Dosage: LAST DOSE PRIOR TO SAE ON 28/JAN/2012
     Route: 042
     Dates: start: 20120107
  4. NOVORAPID [Concomitant]
  5. OMEPRAZOLE [Concomitant]
  6. LANTUS [Concomitant]

REACTIONS (3)
  - Gastric perforation [Fatal]
  - Dehydration [Unknown]
  - Renal failure [Unknown]
